FAERS Safety Report 4642436-X (Version None)
Quarter: 2005Q2

REPORT INFORMATION
  Report Type: 
  Country: None (occurrence: None)
  Receive Date: 20050421
  Receipt Date: 20050421
  Transmission Date: 20051028
  Serious: No
  Sender: FDA-Public Use
  Company Number: None

PATIENT
  Age: 75 Year
  Sex: Male
  Weight: 53 kg

DRUGS (1)
  1. PREDNISONE [Suspect]
     Indication: CHRONIC OBSTRUCTIVE PULMONARY DISEASE
     Dosage: DOSE DECREASED WITH 2 DAYS TO MAINTENANCE DOSE OF 5 MG
     Dates: start: 20040810, end: 20040924

REACTIONS (2)
  - ANAEMIA [None]
  - LEUKOCYTOSIS [None]
